FAERS Safety Report 4486321-5 (Version None)
Quarter: 2004Q3

REPORT INFORMATION
  Report Type: 
  Country: None (occurrence: None)
  Receive Date: 20040921
  Receipt Date: 20040506
  Transmission Date: 20050211
  Serious: Yes (Death)
  Sender: FDA-Public Use
  Company Number: 163-20785-04050148

PATIENT
  Age: 15 Year
  Sex: Male

DRUGS (1)
  1. THALOMID [Suspect]
     Indication: EWING'S SARCOMA
     Dosage: 500 MG, QHS, ORAL
     Route: 048
     Dates: start: 20031014, end: 20031216

REACTIONS (5)
  - DEATH [None]
  - DISEASE PROGRESSION [None]
  - METASTASES TO LUNG [None]
  - NEUROPATHY [None]
  - PAIN EXACERBATED [None]
